FAERS Safety Report 15616259 (Version 1)
Quarter: 2018Q4

REPORT INFORMATION
  Report Type: Spontaneous
  Country: MY (occurrence: MY)
  Receive Date: 20181114
  Receipt Date: 20181114
  Transmission Date: 20190205
  Serious: Yes (Death, Other)
  Sender: FDA-Public Use
  Company Number: MY-ROCHE-2215268

PATIENT
  Age: 73 Year
  Sex: Female

DRUGS (1)
  1. TECENTRIQ [Suspect]
     Active Substance: ATEZOLIZUMAB
     Indication: NON-SMALL CELL LUNG CANCER
     Route: 065

REACTIONS (7)
  - Dyspnoea [Unknown]
  - Death [Fatal]
  - Blood pressure increased [Unknown]
  - Chest discomfort [Unknown]
  - Bradycardia [Unknown]
  - Hot flush [Unknown]
  - Sepsis [Unknown]
